FAERS Safety Report 9829939 (Version 1)
Quarter: 2014Q1

REPORT INFORMATION
  Report Type: Spontaneous
  Country: US (occurrence: US)
  Receive Date: 20140120
  Receipt Date: 20140120
  Transmission Date: 20141002
  Serious: Yes (Hospitalization)
  Sender: FDA-Public Use
  Company Number: US-BAYER-2014-009611

PATIENT
  Age: 16 Year
  Sex: Female
  Weight: 57 kg

DRUGS (8)
  1. YAZ [Suspect]
  2. OCELLA [Suspect]
  3. COLACE [Concomitant]
  4. NEURONTIN [Concomitant]
  5. SENOKOT [Concomitant]
  6. OXYCODONE [Concomitant]
  7. PEPCID [Concomitant]
  8. MIRALAX [Concomitant]

REACTIONS (1)
  - Pulmonary embolism [None]
